FAERS Safety Report 14020223 (Version 1)
Quarter: 2017Q3

REPORT INFORMATION
  Report Type: Spontaneous
  Country: US (occurrence: US)
  Receive Date: 20170928
  Receipt Date: 20170928
  Transmission Date: 20171128
  Serious: Yes (Hospitalization, Other)
  Sender: FDA-Public Use
  Company Number: US-APOTEX-2017AP018842

PATIENT
  Age: 27 Year
  Sex: Female

DRUGS (5)
  1. CHOLESTYRAMINE. [Suspect]
     Active Substance: CHOLESTYRAMINE
     Indication: PRURITUS GENERALISED
     Route: 065
  2. ZOLPIDEM TARTRATE. [Suspect]
     Active Substance: ZOLPIDEM TARTRATE
     Indication: PRURITUS GENERALISED
     Route: 065
  3. HYDROCORTISONE. [Suspect]
     Active Substance: HYDROCORTISONE
     Indication: PRURITUS GENERALISED
     Route: 065
  4. URSODIOL. [Suspect]
     Active Substance: URSODIOL
     Indication: PRURITUS GENERALISED
     Route: 065
  5. VITAMIN K [Suspect]
     Active Substance: PHYTONADIONE
     Indication: PRURITUS GENERALISED
     Dosage: UNK
     Route: 065

REACTIONS (2)
  - Exposure during pregnancy [Unknown]
  - Treatment failure [Unknown]
